FAERS Safety Report 5363803-5 (Version None)
Quarter: 2007Q2

REPORT INFORMATION
  Report Type: 
  Country: None (occurrence: None)
  Receive Date: 20070620
  Receipt Date: 20070608
  Transmission Date: 20071010
  Serious: Yes (Other)
  Sender: FDA-Public Use
  Company Number: US-MERCK-98060888

PATIENT
  Age: 58 Year
  Sex: Male

DRUGS (3)
  1. ZOCOR [Suspect]
     Route: 048
     Dates: start: 19970501, end: 19970801
  2. TIAZAC [Concomitant]
     Route: 065
  3. [COMPOSITION UNSPECIFIED] [Concomitant]
     Route: 065

REACTIONS (3)
  - AMYOTROPHIC LATERAL SCLEROSIS [None]
  - DIABETES MELLITUS [None]
  - LABORATORY TEST ABNORMAL [None]
